FAERS Safety Report 8554868-8 (Version None)
Quarter: 2012Q3

REPORT INFORMATION
  Report Type: 
  Country: None (occurrence: None)
  Receive Date: 20120731
  Receipt Date: 20120724
  Transmission Date: 20120928
  Serious: Yes (Hospitalization)
  Sender: FDA-Public Use
  Company Number: US-CELGENEUS-163-21880-12072820

PATIENT
  Sex: Male

DRUGS (7)
  1. REVLIMID [Suspect]
     Indication: MYELODYSPLASTIC SYNDROME
     Dosage: 10 MILLIGRAM
     Route: 048
     Dates: start: 20111206
  2. CITALOPRAM HYDROBROMIDE [Concomitant]
     Route: 065
  3. TIZANIDINE HYDROCHLORIDE [Concomitant]
     Route: 065
  4. HYDRALAZINE HCL [Concomitant]
     Route: 065
  5. TRAZODONE HYDROCHLORIDE [Concomitant]
     Route: 065
  6. ONDANSETRON [Concomitant]
     Route: 065
  7. PROMETHAZINE [Concomitant]
     Route: 065

REACTIONS (3)
  - DEHYDRATION [None]
  - HEPATIC ENCEPHALOPATHY [None]
  - SINUSITIS [None]
